FAERS Safety Report 6528183-8 (Version None)
Quarter: 2010Q1

REPORT INFORMATION
  Report Type: 
  Country: None (occurrence: None)
  Receive Date: 20100106
  Receipt Date: 20091228
  Transmission Date: 20100710
  Serious: Yes (Hospitalization)
  Sender: FDA-Public Use
  Company Number: US-NOVOPROD-302572

PATIENT
  Sex: Female
  Weight: 73.469 kg

DRUGS (13)
  1. NOVOLOG [Suspect]
     Indication: TYPE 1 DIABETES MELLITUS
     Dosage: 1U/6CARBS IF }140 1U/20POINTS
     Route: 058
     Dates: start: 20050801
  2. AZITHROMYCIN [Concomitant]
     Indication: PROPHYLAXIS
     Dosage: UNK
     Route: 048
  3. RIFAMPIN [Concomitant]
     Indication: CYSTIC FIBROSIS
     Dosage: UNK
     Route: 048
  4. PULMOZYME [Concomitant]
     Indication: CYSTIC FIBROSIS
     Dosage: UNK
  5. ANTIDEPRESSANTS [Concomitant]
     Indication: DRUG USE FOR UNKNOWN INDICATION
     Dosage: UNK
     Route: 048
  6. NEURONTIN [Concomitant]
     Indication: RESTLESS LEGS SYNDROME
     Dosage: UNK
     Route: 048
  7. KLONOPIN [Concomitant]
     Indication: RESTLESS LEGS SYNDROME
     Dosage: UNK
     Route: 048
  8. VITAMIN A [Concomitant]
     Indication: SUPPLEMENTATION THERAPY
     Dosage: UNK
  9. METHADONE                          /00068902/ [Concomitant]
     Indication: PAIN MANAGEMENT
     Dosage: UNK
     Route: 048
  10. DILAUDID [Concomitant]
     Indication: PAIN MANAGEMENT
     Dosage: UNK
     Route: 048
  11. ADEK [Concomitant]
     Indication: CYSTIC FIBROSIS
     Dosage: UNK
     Route: 048
  12. OXYGEN [Concomitant]
     Indication: CYSTIC FIBROSIS
     Dosage: UNK
     Route: 055
  13. VITAMIN K TAB [Concomitant]
     Indication: CYSTIC FIBROSIS
     Dosage: UNK

REACTIONS (2)
  - BLOOD GLUCOSE ABNORMAL [None]
  - RESPIRATORY TRACT INFECTION [None]
